FAERS Safety Report 7381161-1 (Version None)
Quarter: 2011Q1

REPORT INFORMATION
  Report Type: 
  Country: None (occurrence: None)
  Receive Date: 20110329
  Receipt Date: 20110316
  Transmission Date: 20110831
  Serious: Yes (Other)
  Sender: FDA-Public Use
  Company Number: GB-JNJFOC-20110309576

PATIENT
  Age: 71 Year
  Sex: Female
  Weight: 66 kg

DRUGS (12)
  1. SLEEP AID [Concomitant]
     Indication: SLEEP DISORDER THERAPY
     Route: 048
  2. SIMVASTATIN [Concomitant]
     Indication: BLOOD CHOLESTEROL INCREASED
     Route: 048
  3. SIMPLY SLEEP NIGHTTIME [Suspect]
     Route: 048
  4. MAGNESIUM [Concomitant]
     Indication: MEMORY IMPAIRMENT
     Route: 048
  5. AMLODIPINE BESYLATE [Concomitant]
     Indication: HYPERTENSION
     Route: 048
  6. SIMPLY SLEEP NIGHTTIME [Suspect]
     Indication: SLEEP DISORDER THERAPY
     Route: 048
  7. SALMON OIL [Concomitant]
     Indication: ARTHROPATHY
     Dosage: 2000U ONCE DAILY
     Route: 048
  8. AMILORIDE HYDROCHLORIDE AND HYDROCHLOROTHIAZIDE [Concomitant]
     Indication: FLUID RETENTION
     Route: 048
  9. ASPIRIN [Concomitant]
     Indication: ANTICOAGULANT THERAPY
     Route: 048
  10. SENOKOT [Concomitant]
     Indication: ABNORMAL FAECES
     Route: 048
  11. VITAMIN D [Concomitant]
     Indication: MEDICAL DIET
     Route: 048
  12. GINGKO BILOBA (CHINESE HERB) [Concomitant]
     Indication: MEMORY IMPAIRMENT
     Route: 048

REACTIONS (2)
  - INTENTIONAL DRUG MISUSE [None]
  - DRUG DEPENDENCE [None]
